FAERS Safety Report 21477874 (Version 1)
Quarter: 2022Q4

REPORT INFORMATION
  Report Type: Spontaneous
  Country: US (occurrence: None)
  Receive Date: 20221018
  Receipt Date: 20221018
  Transmission Date: 20230113
  Serious: Yes (Hospitalization, Other)
  Sender: FDA-Public Use
  Company Number: None

PATIENT
  Age: 4 Year
  Sex: Female
  Weight: 15.1 kg

DRUGS (9)
  1. AMBRISENTAN [Suspect]
     Active Substance: AMBRISENTAN
     Dosage: FREQUENCY : DAILY;?OTHER ROUTE : G-TUBE;?
     Route: 050
     Dates: start: 20211213, end: 20220921
  2. ALBUTEROL [Concomitant]
     Active Substance: ALBUTEROL
  3. NYSTATIN [Concomitant]
     Active Substance: NYSTATIN
  4. menthol-zinc oxide [Concomitant]
  5. GLYCOLAX [Concomitant]
     Active Substance: POLYETHYLENE GLYCOL 3350
  6. FLONASE [Concomitant]
     Active Substance: FLUTICASONE PROPIONATE
  7. BENADRYL [Concomitant]
     Active Substance: DIPHENHYDRAMINE HYDROCHLORIDE
  8. ERYTHROMYCIN [Concomitant]
     Active Substance: ERYTHROMYCIN
  9. TADALAFIL [Concomitant]
     Active Substance: TADALAFIL

REACTIONS (3)
  - Respiratory tract infection [None]
  - Respiratory distress [None]
  - Iron deficiency anaemia [None]

NARRATIVE: CASE EVENT DATE: 20220913
